FAERS Safety Report 10935550 (Version 1)
Quarter: 2015Q1

REPORT INFORMATION
  Report Type: Spontaneous
  Country: US (occurrence: US)
  Receive Date: 20150320
  Receipt Date: 20150320
  Transmission Date: 20150721
  Serious: No
  Sender: FDA-Public Use
  Company Number: US-GLAXOSMITHKLINE-US2015GSK019024

PATIENT
  Sex: Male

DRUGS (2)
  1. DRISTAN 12 HR NASAL SPRAY [Concomitant]
     Active Substance: OXYMETAZOLINE HYDROCHLORIDE
  2. FLONASE [Suspect]
     Active Substance: FLUTICASONE PROPIONATE
     Indication: PRODUCT USED FOR UNKNOWN INDICATION
     Dosage: UNK, U
     Route: 065

REACTIONS (1)
  - Drug ineffective [Unknown]
